FAERS Safety Report 5389955-9 (Version None)
Quarter: 2007Q3

REPORT INFORMATION
  Report Type: 
  Country: None (occurrence: None)
  Receive Date: 20070716
  Receipt Date: 20070716
  Transmission Date: 20080115
  Serious: Yes (Other)
  Sender: FDA-Public Use
  Company Number: None

PATIENT
  Age: 45 Year
  Sex: Female
  Weight: 83.9154 kg

DRUGS (1)
  1. AEROZOIN UNKNOWN GRAFCO MANUFACTURING [Suspect]
     Indication: THERAPEUTIC SKIN CARE TOPICAL
     Dosage: SPRAYED ON WOUND AREA ONE TIME TOP
     Route: 061
     Dates: start: 20070710, end: 20070711

REACTIONS (4)
  - APPLICATION SITE DISCOMFORT [None]
  - APPLICATION SITE ERYTHEMA [None]
  - APPLICATION SITE PRURITUS [None]
  - DERMATITIS CONTACT [None]
